FAERS Safety Report 24752337 (Version 1)
Quarter: 2024Q4

REPORT INFORMATION
  Report Type: Report from Study
  Country: CA (occurrence: CA)
  Receive Date: 20241219
  Receipt Date: 20241219
  Transmission Date: 20250114
  Serious: Yes (Other)
  Sender: BIOCON
  Company Number: CA-BIOCON BIOLOGICS LIMITED-BBL2024009202

PATIENT

DRUGS (4)
  1. ADALIMUMAB [Suspect]
     Active Substance: ADALIMUMAB
     Indication: Crohn^s disease
     Dosage: 80 MILLIGRAM, QW
     Route: 058
  2. ADALIMUMAB [Suspect]
     Active Substance: ADALIMUMAB
     Dosage: 80 MILLIGRAM, QW
     Route: 058
  3. PANTOPRAZOLE [Concomitant]
     Active Substance: PANTOPRAZOLE
     Indication: Product used for unknown indication
     Route: 048
  4. IMURAN [Concomitant]
     Active Substance: AZATHIOPRINE
     Indication: Product used for unknown indication
     Route: 048

REACTIONS (2)
  - Infected fistula [Recovering/Resolving]
  - Off label use [Recovering/Resolving]
